FAERS Safety Report 15788289 (Version 6)
Quarter: 2025Q1

REPORT INFORMATION
  Report Type: Report from Study
  Country: US (occurrence: US)
  Receive Date: 20190104
  Receipt Date: 20250210
  Transmission Date: 20250409
  Serious: Yes (Hospitalization, Other)
  Sender: TAKEDA
  Company Number: US-SHIRE-US201900045

PATIENT
  Age: 57 Year
  Sex: Female
  Weight: 92 kg

DRUGS (15)
  1. TEDUGLUTIDE [Suspect]
     Active Substance: TEDUGLUTIDE
     Indication: Short-bowel syndrome
     Dosage: 0.3 MILLILITER, QD
     Dates: start: 20170928
  2. TEDUGLUTIDE [Suspect]
     Active Substance: TEDUGLUTIDE
     Dosage: 0.4 MILLILITER, QD
  3. TEDUGLUTIDE [Suspect]
     Active Substance: TEDUGLUTIDE
  4. TEDUGLUTIDE [Suspect]
     Active Substance: TEDUGLUTIDE
  5. CYMBALTA [Concomitant]
     Active Substance: DULOXETINE HYDROCHLORIDE
  6. PROTONIX [Concomitant]
     Active Substance: PANTOPRAZOLE SODIUM
  7. DICYCLOMINE HYDROCHLORIDE [Concomitant]
     Active Substance: DICYCLOMINE HYDROCHLORIDE
  8. FERROUS SULFATE [Concomitant]
     Active Substance: FERROUS SULFATE
  9. ATIVAN [Concomitant]
     Active Substance: LORAZEPAM
  10. LEVOTHYROXINE [Concomitant]
     Active Substance: LEVOTHYROXINE
  11. MAGNESIUM GLUCONATE [Concomitant]
     Active Substance: MAGNESIUM GLUCONATE
  12. VITAMIN D3 [Concomitant]
     Active Substance: CHOLECALCIFEROL
  13. POTASSIUM CHLORIDE [Concomitant]
     Active Substance: POTASSIUM CHLORIDE
  14. REQUIP [Concomitant]
     Active Substance: ROPINIROLE HYDROCHLORIDE
  15. MORPHINE SULFATE [Concomitant]
     Active Substance: MORPHINE SULFATE
     Indication: Product used for unknown indication

REACTIONS (16)
  - Nephrolithiasis [Unknown]
  - Infection [Unknown]
  - Loss of consciousness [Unknown]
  - Urinary tract infection [Unknown]
  - Chest pain [Unknown]
  - Heart rate increased [Unknown]
  - Intestinal obstruction [Recovered/Resolved]
  - COVID-19 [Unknown]
  - Injection site mass [Recovering/Resolving]
  - Inability to afford medication [Unknown]
  - Off label use [Unknown]
  - Product use issue [Unknown]
  - Asthma [Unknown]
  - Dysuria [Unknown]
  - Headache [Recovering/Resolving]
  - Gastrointestinal stoma complication [Recovering/Resolving]

NARRATIVE: CASE EVENT DATE: 20170928
